FAERS Safety Report 13882517 (Version 4)
Quarter: 2018Q3

REPORT INFORMATION
  Report Type: Report from Study
  Country: CA (occurrence: CA)
  Receive Date: 20170818
  Receipt Date: 20180813
  Transmission Date: 20181010
  Serious: Yes (Hospitalization, Other)
  Sender: FDA-Public Use
  Company Number: CA-JNJFOC-20170419634

PATIENT
  Age: 27 Year
  Sex: Female
  Weight: 76.8 kg

DRUGS (16)
  1. REMICADE [Suspect]
     Active Substance: INFLIXIMAB
     Indication: COLITIS ULCERATIVE
     Dosage: ALSO REPORTED AS 768 MG
     Route: 042
     Dates: start: 20100506
  2. VALACYCLOVIR [Concomitant]
     Active Substance: VALACYCLOVIR HYDROCHLORIDE
     Route: 048
  3. REMICADE [Suspect]
     Active Substance: INFLIXIMAB
     Indication: COLITIS ULCERATIVE
     Route: 042
     Dates: start: 20170827
  4. REMICADE [Suspect]
     Active Substance: INFLIXIMAB
     Indication: COLITIS ULCERATIVE
     Route: 042
     Dates: start: 20180413
  5. GABAPENTIN. [Concomitant]
     Active Substance: GABAPENTIN
     Route: 048
  6. REMICADE [Suspect]
     Active Substance: INFLIXIMAB
     Indication: COLITIS ULCERATIVE
     Route: 042
     Dates: start: 20170215
  7. REMICADE [Suspect]
     Active Substance: INFLIXIMAB
     Indication: COLITIS ULCERATIVE
     Route: 042
     Dates: start: 20170611
  8. REMICADE [Suspect]
     Active Substance: INFLIXIMAB
     Indication: COLITIS ULCERATIVE
     Route: 042
     Dates: start: 20171224
  9. MARVELON [Concomitant]
     Active Substance: DESOGESTREL\ETHINYL ESTRADIOL
     Indication: ORAL CONTRACEPTION
     Route: 048
  10. PANTOLOC [Concomitant]
     Active Substance: PANTOPRAZOLE SODIUM
     Route: 048
  11. TOPAMAX [Concomitant]
     Active Substance: TOPIRAMATE
     Route: 048
  12. REMICADE [Suspect]
     Active Substance: INFLIXIMAB
     Indication: COLITIS ULCERATIVE
     Route: 042
     Dates: start: 20150717
  13. RANITIDINE. [Concomitant]
     Active Substance: RANITIDINE
     Route: 048
  14. REMICADE [Suspect]
     Active Substance: INFLIXIMAB
     Indication: COLITIS ULCERATIVE
     Route: 042
     Dates: start: 20150417
  15. REMICADE [Suspect]
     Active Substance: INFLIXIMAB
     Indication: COLITIS ULCERATIVE
     Route: 042
     Dates: start: 20170417
  16. IMURAN [Concomitant]
     Active Substance: AZATHIOPRINE
     Indication: COLITIS ULCERATIVE
     Route: 048

REACTIONS (8)
  - Eczema [Recovered/Resolved]
  - Intra-uterine contraceptive device insertion [Recovered/Resolved]
  - General physical health deterioration [Not Recovered/Not Resolved]
  - Pituitary tumour benign [Not Recovered/Not Resolved]
  - Colitis ulcerative [Recovering/Resolving]
  - Neck mass [Unknown]
  - Inappropriate schedule of drug administration [Unknown]
  - Drug ineffective [Unknown]

NARRATIVE: CASE EVENT DATE: 201702
